FAERS Safety Report 21600911 (Version 1)
Quarter: 2022Q4

REPORT INFORMATION
  Report Type: Spontaneous
  Country: DE (occurrence: DE)
  Receive Date: 20221116
  Receipt Date: 20221116
  Transmission Date: 20230113
  Serious: Yes (Other)
  Sender: FDA-Public Use
  Company Number: None

PATIENT
  Age: 40 Year
  Sex: Female
  Weight: 63 kg

DRUGS (1)
  1. REBIF [Suspect]
     Active Substance: INTERFERON BETA-1A
     Indication: Relapsing-remitting multiple sclerosis
     Dosage: 44 (UNSPECIFIED UNIT)
     Route: 058
     Dates: start: 20220929

REACTIONS (6)
  - Panniculitis [Recovered/Resolved with Sequelae]
  - Lividity [Recovered/Resolved with Sequelae]
  - Skin oedema [Recovered/Resolved with Sequelae]
  - Injection site reaction [Recovered/Resolved with Sequelae]
  - Injection site induration [Recovered/Resolved with Sequelae]
  - Hyperaesthesia [Recovered/Resolved with Sequelae]

NARRATIVE: CASE EVENT DATE: 20220929
